FAERS Safety Report 7978414-2 (Version None)
Quarter: 2011Q4

REPORT INFORMATION
  Report Type: 
  Country: None (occurrence: None)
  Receive Date: 20111205
  Receipt Date: 20111124
  Transmission Date: 20120403
  Serious: Yes (Other)
  Sender: FDA-Public Use
  Company Number: 7097963

PATIENT
  Age: 53 Year
  Sex: Female

DRUGS (1)
  1. LEVOTHYROXINE SODIUM [Suspect]
     Indication: PRODUCT USED FOR UNKNOWN INDICATION
     Dosage: 50 MCG ORAL
     Route: 048
     Dates: start: 20110820, end: 20110921

REACTIONS (5)
  - RESTLESS LEGS SYNDROME [None]
  - INSOMNIA [None]
  - FATIGUE [None]
  - STRESS [None]
  - MENTAL DISORDER [None]
